FAERS Safety Report 14684913 (Version 1)
Quarter: 2018Q1

REPORT INFORMATION
  Report Type: Other
  Country: CN (occurrence: CN)
  Receive Date: 20180327
  Receipt Date: 20180327
  Transmission Date: 20180509
  Serious: Yes (Other)
  Sender: FDA-Public Use
  Company Number: CN-TAKEDA-2018MPI003142

PATIENT
  Age: 58 Year
  Sex: Male
  Weight: 60 kg

DRUGS (1)
  1. BORTEZOMIB [Suspect]
     Active Substance: BORTEZOMIB
     Indication: CHEMOTHERAPY
     Dosage: 2.1 MG, QD
     Route: 041
     Dates: start: 20170815, end: 20170815

REACTIONS (1)
  - Bone marrow failure [Unknown]

NARRATIVE: CASE EVENT DATE: 20170819
